FAERS Safety Report 10461203 (Version 1)
Quarter: 2014Q3

REPORT INFORMATION
  Report Type: Spontaneous
  Country: US (occurrence: None)
  Receive Date: 20140917
  Receipt Date: 20140917
  Transmission Date: 20150326
  Serious: No
  Sender: FDA-Public Use
  Company Number: None

PATIENT
  Age: 63 Year
  Sex: Female
  Weight: 68.04 kg

DRUGS (5)
  1. CALCIUM [Concomitant]
     Active Substance: CALCIUM
  2. VITAMIN D [Concomitant]
     Active Substance: CHOLECALCIFEROL
  3. LOSARTAN [Concomitant]
     Active Substance: LOSARTAN
  4. NITROFURANTOIN. [Suspect]
     Active Substance: NITROFURANTOIN
     Indication: URINARY TRACT INFECTION
     Route: 048
     Dates: start: 20140904, end: 20140906
  5. LEVOTHYROXIN [Concomitant]
     Active Substance: LEVOTHYROXINE

REACTIONS (11)
  - Pain [None]
  - Chills [None]
  - Pyrexia [None]
  - Back pain [None]
  - Cough [None]
  - Malaise [None]
  - Fatigue [None]
  - Headache [None]
  - Arthralgia [None]
  - Decreased appetite [None]
  - Urticaria [None]

NARRATIVE: CASE EVENT DATE: 20140904
